FAERS Safety Report 10173967 (Version 1)
Quarter: 2014Q2

REPORT INFORMATION
  Report Type: Spontaneous
  Country: CA (occurrence: None)
  Receive Date: 20140513
  Receipt Date: 20140513
  Transmission Date: 20141212
  Serious: Yes (Disabling)
  Sender: FDA-Public Use
  Company Number: 2014-1089-SPO

PATIENT
  Age: 47 Year
  Sex: Female
  Weight: 90.7 kg

DRUGS (5)
  1. ESTROGEL [Suspect]
     Indication: PRODUCT USED FOR UNKNOWN INDICATION
     Route: 048
  2. PROMETIUM (PROGESTERONE) (CAPSULE) [Suspect]
     Indication: PRODUCT USED FOR UNKNOWN INDICATION
     Route: 048
  3. 5-HTP (OXITRIPTAM) (TABLET) [Concomitant]
  4. NUTRASEA HP (OMEGA-3 MARINE TRIGLYCERIDES) (UNKNOWN) [Concomitant]
  5. TYLENOL (PARACETAMOL) [Concomitant]

REACTIONS (3)
  - Breast pain [None]
  - Oedema [None]
  - Migraine with aura [None]
